FAERS Safety Report 10578454 (Version 1)
Quarter: 2014Q4

REPORT INFORMATION
  Report Type: Spontaneous
  Country: US (occurrence: None)
  Receive Date: 20141107
  Receipt Date: 20141107
  Transmission Date: 20150529
  Serious: Yes (Hospitalization)
  Sender: FDA-Public Use
  Company Number: 1393728

PATIENT
  Age: 28 Year
  Sex: Male

DRUGS (1)
  1. NAPROXEN. [Suspect]
     Active Substance: NAPROXEN
     Indication: PRODUCT USED FOR UNKNOWN INDICATION
     Dosage: APPROX 320 TABLETS OF NAPROXEN  220 MG  (70.4 G) WITH AN UNKNOWN QUANTITY OF ALOCOHOL 90 MIN BEFORE ARRIVAL, ORAL
     Route: 048

REACTIONS (6)
  - Generalised tonic-clonic seizure [None]
  - Somnolence [None]
  - Lethargy [None]
  - Overdose [None]
  - Metabolic acidosis [None]
  - Hypotension [None]
